FAERS Safety Report 8187483-9 (Version None)
Quarter: 2012Q1

REPORT INFORMATION
  Report Type: 
  Country: None (occurrence: None)
  Receive Date: 20120306
  Receipt Date: 20120229
  Transmission Date: 20120608
  Serious: Yes (Other)
  Sender: FDA-Public Use
  Company Number: JP-ROCHE-780679

PATIENT
  Sex: Male
  Weight: 63.4 kg

DRUGS (8)
  1. PEGINTERFERON ALFA-2A [Suspect]
     Indication: HEPATITIS C
     Route: 058
     Dates: start: 20100726, end: 20101115
  2. PEGINTERFERON ALFA-2A [Suspect]
     Route: 058
     Dates: start: 20101206, end: 20101206
  3. PEGINTERFERON ALFA-2A [Suspect]
     Route: 058
     Dates: start: 20110322, end: 20111128
  4. LOXONIN [Concomitant]
     Dosage: AT THE THERMACOGENESIS
     Route: 048
  5. MUCOSTA [Concomitant]
     Dosage: AT THE THERMACOGENESIS
     Route: 048
  6. PEGINTERFERON ALFA-2A [Suspect]
     Route: 058
     Dates: start: 20101213, end: 20110221
  7. PEGINTERFERON ALFA-2A [Suspect]
     Route: 058
     Dates: start: 20110228, end: 20110314
  8. COPEGUS [Suspect]
     Indication: HEPATITIS C
     Route: 048
     Dates: start: 20100726, end: 20111204

REACTIONS (3)
  - NEUTROPHIL COUNT DECREASED [None]
  - WHITE BLOOD CELL COUNT DECREASED [None]
  - STOMATITIS [None]
